FAERS Safety Report 8649031 (Version 6)
Quarter: 2012Q4

REPORT INFORMATION
  Report Type: 
  Country: CA (occurrence: CA)
  Receive Date: 20120704
  Receipt Date: 20120917
  Transmission Date: 20130627
  Serious: Yes (Hospitalization, Other)
  Sender: FDA-Public Use
  Company Number: PHHY2012CA056310

PATIENT
  Age: 64 None
  Sex: Male

DRUGS (13)
  1. ACLASTA [Suspect]
     Indication: OSTEOPOROSIS
     Route: 042
     Dates: start: 20110824
  2. PEDIAPRED [Concomitant]
     Dosage: 75 mg, QD
     Route: 048
  3. LOSEC [Concomitant]
     Dosage: 20 mg, BID
     Route: 048
  4. LASIX [Concomitant]
     Dosage: 30 mg, QD
     Route: 048
  5. IRON [Concomitant]
     Dosage: 300 mg, QD
     Route: 048
  6. POTASSIUM [Concomitant]
     Dosage: 5 ml, BID
     Route: 048
  7. LIPITOR [Concomitant]
     Dosage: 40 mg, QD
     Route: 048
  8. ASPIRIN [Concomitant]
     Dosage: 5 mg, QD
     Route: 048
  9. DILAUDID [Concomitant]
     Dosage: 2 mg, BID
     Route: 048
  10. FLOVENT [Concomitant]
     Dosage: 3 DF, BID
  11. ATROVENT [Concomitant]
     Dosage: 3 DF, QID
  12. VENTOLIN [Concomitant]
     Dosage: 3 DF, PRN
  13. MULTIVITAMINS [Concomitant]

REACTIONS (11)
  - Pneumonia [Not Recovered/Not Resolved]
  - Secretion discharge [Not Recovered/Not Resolved]
  - Malaise [Not Recovered/Not Resolved]
  - Pyrexia [Not Recovered/Not Resolved]
  - Dyspnoea [Not Recovered/Not Resolved]
  - Pleural effusion [Not Recovered/Not Resolved]
  - Myocardial infarction [Not Recovered/Not Resolved]
  - Liver abscess [Not Recovered/Not Resolved]
  - Gallbladder disorder [Not Recovered/Not Resolved]
  - Sepsis [Not Recovered/Not Resolved]
  - Post procedural infection [Not Recovered/Not Resolved]
